FAERS Safety Report 23496210 (Version 1)
Quarter: 2024Q1

REPORT INFORMATION
  Report Type: Spontaneous
  Country: US (occurrence: None)
  Receive Date: 20240207
  Receipt Date: 20240207
  Transmission Date: 20240410
  Serious: No
  Sender: FDA-Public Use
  Company Number: US-ROCHE-3460082

PATIENT
  Sex: Female
  Weight: 81.6 kg

DRUGS (32)
  1. XOLAIR [Suspect]
     Active Substance: OMALIZUMAB
     Indication: Asthma
     Dosage: TWO 150 MG/ML PFS PER DOSE
     Route: 058
  2. XOLAIR [Suspect]
     Active Substance: OMALIZUMAB
  3. XOLAIR [Suspect]
     Active Substance: OMALIZUMAB
  4. DOCUSATE SODIUM [Concomitant]
     Active Substance: DOCUSATE SODIUM
     Indication: Constipation
     Dosage: 100 TO 200 MG AS NEEDED
     Route: 048
  5. VOLTAREN [Concomitant]
     Active Substance: DICLOFENAC SODIUM
     Route: 061
  6. PROLIA [Concomitant]
     Active Substance: DENOSUMAB
     Route: 058
  7. DULOXETINE [Concomitant]
     Active Substance: DULOXETINE
     Dosage: IN THE MORNING
     Route: 048
  8. MIRALAX [Concomitant]
     Active Substance: POLYETHYLENE GLYCOL 3350
     Indication: Constipation
     Dosage: DAILY AS NEEDED
     Route: 048
  9. XOPENEX HFA [Concomitant]
     Active Substance: LEVALBUTEROL TARTRATE
     Indication: Wheezing
     Dosage: 2 PUFFS EVERY 4 HOURS AS NEEDED
     Route: 055
  10. TRAZODONE [Concomitant]
     Active Substance: TRAZODONE HYDROCHLORIDE
     Dosage: AT BEDTIME
     Route: 048
  11. CLOPIDOGREL [Concomitant]
     Active Substance: CLOPIDOGREL BISULFATE
     Route: 048
  12. EPINEPHRINE [Concomitant]
     Active Substance: EPINEPHRINE
     Dosage: 0.3 MG/0.3ML AUTO INJECTOR EVERY 4 HOURS AS NEEDED FOR ANAPHYLAXIS
     Route: 030
  13. ZYRTEC [Concomitant]
     Active Substance: CETIRIZINE HYDROCHLORIDE
     Route: 048
  14. MONTELUKAST [Concomitant]
     Active Substance: MONTELUKAST SODIUM
     Route: 048
  15. PREDNISONE [Concomitant]
     Active Substance: PREDNISONE
     Dosage: TWO 20 MG TABLETS AS DIRECTED AS NEEDED
     Route: 048
  16. PREDNISONE [Concomitant]
     Active Substance: PREDNISONE
     Dosage: TWO 1 MG TABLETS PER DOSE FOR 90 DAYS
     Route: 048
  17. HYDROCHLOROTHIAZIDE [Concomitant]
     Active Substance: HYDROCHLOROTHIAZIDE
     Route: 048
  18. METOPROLOL TARTRATE [Concomitant]
     Active Substance: METOPROLOL TARTRATE
     Route: 048
  19. FAMOTIDINE [Concomitant]
     Active Substance: FAMOTIDINE
     Dosage: AT BEDTIME
     Route: 048
  20. LEVOTHYROXINE [Concomitant]
     Active Substance: LEVOTHYROXINE\LEVOTHYROXINE SODIUM
     Route: 048
  21. DEXTRAN 70\HYPROMELLOSES [Concomitant]
     Active Substance: DEXTRAN 70\HYPROMELLOSES
     Route: 047
  22. FLUTICASONE PROPIONATE [Concomitant]
     Active Substance: FLUTICASONE PROPIONATE
     Dosage: 2 SPRAYS INTRANASAL DAILY AS NEEDED
     Route: 055
  23. NITROSTAT [Concomitant]
     Active Substance: NITROGLYCERIN
     Indication: Chest pain
     Route: 060
  24. FOLIC ACID [Concomitant]
     Active Substance: FOLIC ACID
     Route: 048
  25. ROSUVASTATIN [Concomitant]
     Active Substance: ROSUVASTATIN
     Route: 048
  26. AZITHROMYCIN [Concomitant]
     Active Substance: AZITHROMYCIN
     Route: 048
  27. DOXYCYCLINE [Concomitant]
     Active Substance: DOXYCYCLINE
     Route: 048
  28. TRAMADOL [Concomitant]
     Active Substance: TRAMADOL\TRAMADOL HYDROCHLORIDE
     Indication: Pain
     Dosage: 50 TO 100 MG EVERY 6 HOURS AS NEEDED
     Route: 048
  29. HUMIRA [Concomitant]
     Active Substance: ADALIMUMAB
     Dosage: 0.4 ML PER DOSE
     Route: 058
  30. FUROSEMIDE [Concomitant]
     Active Substance: FUROSEMIDE
     Indication: Oedema
     Route: 048
  31. METHOTREXATE SODIUM [Concomitant]
     Active Substance: METHOTREXATE SODIUM
     Route: 048
  32. ACETAMINOPHEN [Concomitant]
     Active Substance: ACETAMINOPHEN
     Indication: Pain
     Route: 048

REACTIONS (2)
  - Intercepted product storage error [Unknown]
  - No adverse event [Unknown]

NARRATIVE: CASE EVENT DATE: 20231101
